FAERS Safety Report 7789290-5 (Version None)
Quarter: 2011Q3

REPORT INFORMATION
  Report Type: 
  Country: None (occurrence: None)
  Receive Date: 20110930
  Receipt Date: 20110928
  Transmission Date: 20111222
  Serious: Yes (Hospitalization)
  Sender: FDA-Public Use
  Company Number: US-GLAXOSMITHKLINE-A0853523A

PATIENT
  Age: 50 Year
  Sex: Female

DRUGS (1)
  1. AVANDIA [Suspect]
     Indication: BLOOD GLUCOSE INCREASED
     Dosage: 8MG PER DAY
     Route: 048
     Dates: end: 20010501

REACTIONS (7)
  - ATRIAL FIBRILLATION [None]
  - IMPLANTABLE DEFIBRILLATOR INSERTION [None]
  - VENTRICULAR FIBRILLATION [None]
  - CARDIAC ARREST [None]
  - MYOCARDIAL INFARCTION [None]
  - TORSADE DE POINTES [None]
  - CARDIAC DISORDER [None]
